FAERS Safety Report 5371297-9 (Version None)
Quarter: 2007Q2

REPORT INFORMATION
  Report Type: 
  Country: None (occurrence: None)
  Receive Date: 20070615
  Receipt Date: 20070206
  Transmission Date: 20071010
  Serious: Yes (Other)
  Sender: FDA-Public Use
  Company Number: 200618499US

PATIENT
  Age: 73 Year
  Sex: Female
  Weight: 81 kg

DRUGS (12)
  1. LANTUS [Suspect]
     Indication: DIABETES MELLITUS NON-INSULIN-DEPENDENT
     Dosage: LANTUS IVA PREFILLED SYRINGES/VIAL U QAM
     Dates: start: 20060913, end: 20061006
  2. LANTUS [Suspect]
     Indication: DIABETES MELLITUS NON-INSULIN-DEPENDENT
     Dosage: LANTUS VIA CARTRIDGE/PEN U QAM
     Dates: start: 20061006
  3. LANTUS [Suspect]
     Indication: DIABETES MELLITUS NON-INSULIN-DEPENDENT
     Dosage: 25 U QAM
     Dates: start: 20061001
  4. OPTICLIK [Suspect]
     Indication: DIABETES MELLITUS NON-INSULIN-DEPENDENT
     Dates: start: 20061006
  5. GLIPIZIDE [Concomitant]
  6. GLIPIZIDE [Concomitant]
  7. ACETYLSLICYLIC ACID (ASPIRIN) [Concomitant]
  8. NIFEDIPINE (PROCARDIA) [Concomitant]
  9. ISOSORBIDE DINITRATE [Concomitant]
  10. HYDRALAZINE HCL [Concomitant]
  11. PROPRANOLOL [Concomitant]
  12. METFORMIN, GLIBENCLAMIDE (GLUCOVANCE/01503701/) [Concomitant]

REACTIONS (2)
  - BLOOD GLUCOSE FLUCTUATION [None]
  - HYPERGLYCAEMIA [None]
